FAERS Safety Report 9298839 (Version 1)
Quarter: 2013Q2

REPORT INFORMATION
  Report Type: Spontaneous
  Country: DE (occurrence: None)
  Receive Date: 20130515
  Receipt Date: 20130515
  Transmission Date: 20140414
  Serious: Yes (Hospitalization, Other)
  Sender: FDA-Public Use
  Company Number: GER/GER/13/0029543

PATIENT
  Sex: Male
  Weight: 3.8 kg

DRUGS (4)
  1. CITALOPRAM [Suspect]
     Indication: PRODUCT USED FOR UNKNOWN INDICATION
     Route: 064
  2. ATOSIL (PROMETHAZINE HYDROCHLORIDE) [Concomitant]
  3. ORTHOMOL NATAL (ORTHOMOL) [Concomitant]
  4. TAVOR (LORAZEPAM) [Concomitant]

REACTIONS (5)
  - Maternal drugs affecting foetus [None]
  - Agitation neonatal [None]
  - Neonatal hyponatraemia [None]
  - Neonatal respiratory distress syndrome [None]
  - Hypertonia neonatal [None]
